FAERS Safety Report 6639642-1 (Version None)
Quarter: 2010Q1

REPORT INFORMATION
  Report Type: 
  Country: None (occurrence: None)
  Receive Date: 20100315
  Receipt Date: 20100225
  Transmission Date: 20100710
  Serious: Yes (Hospitalization)
  Sender: FDA-Public Use
  Company Number: DSA_42748_2010

PATIENT
  Age: 34 Year
  Sex: Female

DRUGS (4)
  1. DILTIAZEM HYDROCHLORIDE [Suspect]
     Indication: SINUS TACHYCARDIA
     Dosage: 100 MG QD ORAL, AS NEEDED ORAL
     Route: 048
     Dates: end: 20100211
  2. DILTIAZEM HYDROCHLORIDE [Suspect]
     Indication: SINUS TACHYCARDIA
     Dosage: 100 MG QD ORAL, AS NEEDED ORAL
     Route: 048
     Dates: end: 20100211
  3. OMEPRAZOLE [Concomitant]
  4. POLAPREZINC [Concomitant]

REACTIONS (5)
  - ATRIOVENTRICULAR BLOCK COMPLETE [None]
  - FALL [None]
  - HYPOTENSION [None]
  - LOSS OF CONSCIOUSNESS [None]
  - SICK SINUS SYNDROME [None]
